FAERS Safety Report 15261074 (Version 2)
Quarter: 2018Q3

REPORT INFORMATION
  Report Type: Spontaneous
  Country: CL (occurrence: CL)
  Receive Date: 20180809
  Receipt Date: 20180904
  Transmission Date: 20181010
  Serious: Yes (Hospitalization, Other)
  Sender: FDA-Public Use
  Company Number: CL-009507513-1808CHL001049

PATIENT
  Age: 14 Month
  Sex: Male

DRUGS (1)
  1. BETAMETHASONE DIPROPIONATE. [Suspect]
     Active Substance: BETAMETHASONE DIPROPIONATE
     Indication: DERMATITIS
     Dosage: PROLONGED USE
     Route: 061

REACTIONS (5)
  - Hypertension [Recovered/Resolved]
  - Growth retardation [Recovering/Resolving]
  - Obesity [Recovering/Resolving]
  - Dyslipidaemia [Recovering/Resolving]
  - Cushing^s syndrome [Recovering/Resolving]
